FAERS Safety Report 17850247 (Version 1)
Quarter: 2020Q2

REPORT INFORMATION
  Report Type: Spontaneous
  Country: US (occurrence: US)
  Receive Date: 20200602
  Receipt Date: 20200602
  Transmission Date: 20200714
  Serious: Yes (Life-Threatening, Hospitalization)
  Sender: FDA-Public Use
  Company Number: None

PATIENT
  Age: 53 Year
  Sex: Male
  Weight: 62.1 kg

DRUGS (2)
  1. LANTUS 12 UNITS NIGHTLY [Concomitant]
  2. EMPAGLIFLOZIN [Suspect]
     Active Substance: EMPAGLIFLOZIN
     Indication: TYPE 2 DIABETES MELLITUS
     Route: 048

REACTIONS (3)
  - Decreased appetite [None]
  - Malaise [None]
  - Diabetic ketoacidosis [None]

NARRATIVE: CASE EVENT DATE: 20200515
